FAERS Safety Report 16941615 (Version 1)
Quarter: 2019Q4

REPORT INFORMATION
  Report Type: Spontaneous
  Country: FR (occurrence: FR)
  Receive Date: 20191021
  Receipt Date: 20191021
  Transmission Date: 20200122
  Serious: Yes (Hospitalization)
  Sender: FDA-Public Use
  Company Number: FR-009507513-1910FRA009815

PATIENT
  Age: 73 Year
  Sex: Male
  Weight: 70 kg

DRUGS (2)
  1. KEYTRUDA [Suspect]
     Active Substance: PEMBROLIZUMAB
     Dosage: 400 MILLIGRAM, EVERY 6 WEEKS
     Route: 041
     Dates: start: 20190716, end: 20190827
  2. KEYTRUDA [Suspect]
     Active Substance: PEMBROLIZUMAB
     Indication: ADENOCARCINOMA
     Dosage: 200 MILLIGRAM, QW
     Route: 041
     Dates: start: 20190108, end: 20190716

REACTIONS (2)
  - Chest pain [Recovering/Resolving]
  - Pericarditis [Recovering/Resolving]

NARRATIVE: CASE EVENT DATE: 20190810
